FAERS Safety Report 8531848 (Version 12)
Quarter: 2013Q4

REPORT INFORMATION
  Report Type: Report from Study
  Country: KR (occurrence: KR)
  Receive Date: 20120426
  Receipt Date: 20131211
  Transmission Date: 20140711
  Serious: Yes (Hospitalization)
  Sender: FDA-Public Use
  Company Number: KR-ROCHE-1060170

PATIENT
  Age: 68 Year
  Sex: Female
  Weight: 46 kg

DRUGS (51)
  1. METRONIDAZOL [Concomitant]
     Indication: OROPHARYNGEAL PAIN
     Route: 042
     Dates: start: 20120603, end: 20120604
  2. METRONIDAZOL [Concomitant]
     Indication: INFECTION PROPHYLAXIS
     Route: 048
     Dates: start: 20120602, end: 20120610
  3. LEVOFLOXACIN [Concomitant]
     Indication: OROPHARYNGEAL PAIN
     Route: 042
     Dates: start: 20120602, end: 20120603
  4. LEVOFLOXACIN [Concomitant]
     Indication: INFECTION PROPHYLAXIS
  5. MEGESTROL [Concomitant]
     Indication: DECREASED APPETITE
     Route: 048
     Dates: start: 20120510, end: 20121031
  6. LEVOCETIRIZINA [Concomitant]
     Indication: RHINORRHOEA
     Route: 048
     Dates: start: 20120527, end: 20120529
  7. DEXIBUPROFEN [Concomitant]
     Indication: PRODUCTIVE COUGH
     Route: 048
     Dates: start: 20120527, end: 20120529
  8. DEXIBUPROFEN [Concomitant]
     Indication: OROPHARYNGEAL PAIN
  9. LEVOSULPIRIDE [Concomitant]
     Indication: PROPHYLAXIS
     Route: 048
     Dates: start: 20120527, end: 20120529
  10. CIMETIDINE [Concomitant]
     Indication: PROPHYLAXIS
     Route: 048
     Dates: start: 20120527, end: 20120529
  11. FAMOTIDINE [Concomitant]
     Indication: PROPHYLAXIS
     Route: 048
     Dates: start: 20120322, end: 20120412
  12. FAMOTIDINE [Concomitant]
     Indication: ABDOMINAL PAIN UPPER
  13. RANITIDINE [Concomitant]
     Indication: PYREXIA
     Route: 042
     Dates: start: 20120329, end: 20120329
  14. ITOPRIDE [Concomitant]
     Indication: PROPHYLAXIS
     Route: 048
     Dates: start: 20120329, end: 20120425
  15. GRANISETRON [Concomitant]
     Indication: NAUSEA
     Route: 048
     Dates: start: 20120405, end: 20120412
  16. PIPERACILLIN [Concomitant]
     Indication: INFECTION PROPHYLAXIS
     Route: 042
     Dates: start: 20120414, end: 20120414
  17. TOBRAMYCIN [Concomitant]
     Indication: INFECTION PROPHYLAXIS
     Route: 042
     Dates: start: 20120414, end: 20120414
  18. TRASTUZUMAB [Suspect]
     Indication: HER-2 POSITIVE GASTRIC CANCER
     Dosage: MOST RECENT DOSE: 17/MAY/2012, LAST DOSE: 282MG
     Route: 042
     Dates: start: 20120329
  19. PERTUZUMAB [Suspect]
     Indication: HER-2 POSITIVE GASTRIC CANCER
     Dosage: DATE OF MOST RECENT DOSE OF PRIOR TO AE:17/MAY/2012, LAST DOSE: 420MG
     Route: 042
     Dates: start: 20120329
  20. CAPECITABINE [Suspect]
     Indication: HER-2 POSITIVE GASTRIC CANCER
     Dosage: LAST DOSE PRIOR TO SAE: 06/APR/2012, LAST DOSE TAKEN: 750 MG/M2
     Route: 048
     Dates: start: 20120329
  21. CISPLATIN [Suspect]
     Indication: HER-2 POSITIVE GASTRIC CANCER
     Dosage: LAST DOSE PRIOR TO AE ONSET: 17/MAY/2012, LAST DOSE: 60MG/M2
     Route: 042
     Dates: start: 20120329
  22. CISPLATIN [Suspect]
     Dosage: DOSE REDUCED
     Route: 065
  23. CLARITHROMYCIN [Concomitant]
     Indication: OROPHARYNGEAL PAIN
     Route: 048
     Dates: start: 20120527, end: 20120529
  24. CLARITHROMYCIN [Concomitant]
     Indication: PRODUCTIVE COUGH
  25. ALMAGATE [Concomitant]
     Indication: PAIN
     Route: 048
     Dates: start: 20120322, end: 20121211
  26. ALMAGATE [Concomitant]
     Indication: PROPHYLAXIS
  27. APREPITANT [Concomitant]
     Indication: NAUSEA
     Route: 048
     Dates: start: 20120329, end: 20120814
  28. APREPITANT [Concomitant]
     Indication: PROPHYLAXIS
     Route: 048
     Dates: start: 20120330, end: 20120816
  29. PALONOSETRON [Concomitant]
     Indication: PREMEDICATION
     Route: 042
     Dates: start: 20120329, end: 20120814
  30. PALONOSETRON [Concomitant]
     Indication: PROPHYLAXIS OF NAUSEA AND VOMITING
  31. DEXAMETHASONE [Concomitant]
     Indication: PREMEDICATION
     Route: 048
     Dates: start: 20120330, end: 20120817
  32. DEXAMETHASONE [Concomitant]
     Route: 042
     Dates: start: 20120329
  33. DEXAMETHASONE [Concomitant]
     Route: 042
     Dates: start: 20120426, end: 20120614
  34. MANNITOL [Concomitant]
     Indication: PREMEDICATION
     Route: 042
     Dates: start: 20120329, end: 20120814
  35. ACETAMINOPHEN [Concomitant]
     Indication: PREMEDICATION
     Route: 048
     Dates: start: 20120329
  36. ACETAMINOPHEN [Concomitant]
     Indication: HYPERSENSITIVITY
  37. CHLORPHENIRAMINE MALEATE [Concomitant]
     Indication: PREMEDICATION
     Route: 042
     Dates: start: 20120329
  38. OXYCODONE [Concomitant]
     Indication: ABDOMINAL PAIN UPPER
     Route: 048
     Dates: start: 20120329
  39. OXYCODONE [Concomitant]
     Route: 048
     Dates: start: 20120405
  40. POVIDONE IODINE [Concomitant]
     Indication: STOMATITIS
     Route: 065
     Dates: start: 20120412
  41. POVIDONE IODINE [Concomitant]
     Indication: DIARRHOEA
     Route: 065
     Dates: start: 20120417, end: 20120730
  42. LOPERAMIDE [Concomitant]
     Indication: DIARRHOEA
     Route: 048
     Dates: start: 20120412, end: 20120709
  43. METOCLOPRAMIDE [Concomitant]
     Indication: NAUSEA
     Route: 048
     Dates: start: 20120405, end: 20120629
  44. METOCLOPRAMIDE [Concomitant]
     Indication: PROPHYLAXIS
     Route: 042
     Dates: start: 20120602, end: 20120602
  45. PANTOPRAZOLE [Concomitant]
     Indication: ABDOMINAL PAIN UPPER
     Route: 048
     Dates: start: 20120412
  46. PANTOPRAZOLE [Concomitant]
     Indication: PROPHYLAXIS
     Route: 042
     Dates: start: 20120603, end: 20120603
  47. CHLORHEXIDINE GLUCONATE [Concomitant]
     Indication: STOMATITIS
     Route: 065
     Dates: start: 20120416, end: 20120607
  48. NORMAL SALINE [Concomitant]
     Indication: STOMATITIS
     Route: 065
     Dates: start: 20120416, end: 20120520
  49. MUPIROCIN [Concomitant]
     Indication: PALMAR-PLANTAR ERYTHRODYSAESTHESIA SYNDROME
     Route: 062
     Dates: start: 20120422, end: 20121130
  50. MORPHINE SULFATE [Concomitant]
     Indication: ABDOMINAL PAIN UPPER
     Route: 042
     Dates: start: 20120602, end: 20120602
  51. MORPHINE SULFATE [Concomitant]
     Indication: ABDOMINAL PAIN

REACTIONS (4)
  - Ileus [Recovered/Resolved]
  - Renal failure acute [Recovered/Resolved]
  - Vomiting [Recovered/Resolved]
  - Diarrhoea [Recovered/Resolved]
